FAERS Safety Report 4763992-7 (Version None)
Quarter: 2005Q3

REPORT INFORMATION
  Report Type: 
  Country: None (occurrence: None)
  Receive Date: 20050906
  Receipt Date: 20050825
  Transmission Date: 20060218
  Serious: Yes (Hospitalization)
  Sender: FDA-Public Use
  Company Number: MEDI-0003629

PATIENT
  Sex: Female

DRUGS (3)
  1. ETHYOL [Suspect]
     Indication: RADIOTHERAPY
     Dosage: 500 MG, 5 IN 1 WK, SUBCUTANEOUS
     Route: 058
     Dates: start: 20050810
  2. RADIATION THERAPY [Concomitant]
  3. CHEMOTHERAPY [Concomitant]

REACTIONS (6)
  - CHILLS [None]
  - FEBRILE NEUTROPENIA [None]
  - HYPOTENSION [None]
  - NAUSEA [None]
  - RASH GENERALISED [None]
  - TACHYCARDIA [None]
